FAERS Safety Report 8914554 (Version 1)
Quarter: 2012Q4

REPORT INFORMATION
  Report Type: 
  Country: US (occurrence: US)
  Receive Date: 20121119
  Receipt Date: 20121119
  Transmission Date: 20130627
  Serious: Yes (Other)
  Sender: FDA-Public Use
  Company Number: US-BRISTOL-MYERS SQUIBB COMPANY-17112012

PATIENT
  Age: 55 Year
  Sex: Female
  Weight: 80.72 kg

DRUGS (1)
  1. ORENCIA [Suspect]
     Indication: RHEUMATOID ARTHRITIS
     Dosage: last infusion on 30Aug12
     Route: 042
     Dates: start: 200903

REACTIONS (3)
  - Nephrolithiasis [Unknown]
  - Urinary tract infection [Unknown]
  - Renal papillary necrosis [Unknown]
